FAERS Safety Report 6271752-3 (Version None)
Quarter: 2009Q3

REPORT INFORMATION
  Report Type: 
  Country: None (occurrence: None)
  Receive Date: 20090717
  Receipt Date: 20090713
  Transmission Date: 20100115
  Serious: Yes (Other)
  Sender: FDA-Public Use
  Company Number: US-BAYER-200924092NA

PATIENT
  Age: 34 Year
  Sex: Female
  Weight: 52 kg

DRUGS (1)
  1. MIRENA [Suspect]
     Indication: CONTRACEPTION
     Dosage: CONTINUOUS
     Route: 015
     Dates: start: 20080516, end: 20090610

REACTIONS (4)
  - ACNE [None]
  - COMPLICATION OF DEVICE REMOVAL [None]
  - IUCD COMPLICATION [None]
  - UTERINE RUPTURE [None]
